FAERS Safety Report 5545043-X (Version None)
Quarter: 2007Q4

REPORT INFORMATION
  Report Type: 
  Country: None (occurrence: None)
  Receive Date: 20071210
  Receipt Date: 20070120
  Transmission Date: 20080405
  Serious: No
  Sender: FDA-Public Use
  Company Number: US-AMGEN-KDL207859

PATIENT
  Sex: Male

DRUGS (2)
  1. ENBREL [Suspect]
     Indication: PSORIATIC ARTHROPATHY
     Route: 058
     Dates: start: 20040101
  2. ENBREL [Suspect]
     Indication: PSORIASIS

REACTIONS (3)
  - ARTHRALGIA [None]
  - ASTHENIA [None]
  - GAIT DISTURBANCE [None]
